FAERS Safety Report 23376023 (Version 8)
Quarter: 2024Q2

REPORT INFORMATION
  Report Type: Spontaneous
  Country: CA (occurrence: CA)
  Receive Date: 20240108
  Receipt Date: 20240628
  Transmission Date: 20240716
  Serious: Yes (Other)
  Sender: FDA-Public Use
  Company Number: CA-CELLTRION INC.-2023CA000874

PATIENT

DRUGS (13)
  1. INFLECTRA [Suspect]
     Active Substance: INFLIXIMAB-DYYB
     Indication: Crohn^s disease
     Dosage: 300 MG, 0, 2, 6 WEEKS, THEN EVERY 8 WEEKS
     Route: 042
     Dates: start: 20180107, end: 20180420
  2. INFLECTRA [Suspect]
     Active Substance: INFLIXIMAB-DYYB
     Dosage: 10 MG/KG, EVERY 6 WEEKS
     Route: 042
     Dates: start: 20180604, end: 20190424
  3. INFLECTRA [Suspect]
     Active Substance: INFLIXIMAB-DYYB
     Dosage: 610 MG, EVERY 6 WEEKS
     Route: 042
     Dates: start: 20190621, end: 20190801
  4. INFLECTRA [Suspect]
     Active Substance: INFLIXIMAB-DYYB
     Dosage: 700 MG, EVERY 6 WEEKS
     Route: 042
     Dates: start: 20190911, end: 20200318
  5. INFLECTRA [Suspect]
     Active Substance: INFLIXIMAB-DYYB
     Dosage: 700 MG, 0, 2, 6 WEEKS, THEN EVERY 8 WEEKS (RE-INDUCTION)
     Route: 042
     Dates: start: 20200629
  6. INFLECTRA [Suspect]
     Active Substance: INFLIXIMAB-DYYB
     Dosage: 700 MG, 0, 2, 6 WEEKS, THEN EVERY 8 WEEKS (RE-INDUCTION)
     Route: 042
     Dates: start: 20221128
  7. INFLECTRA [Suspect]
     Active Substance: INFLIXIMAB-DYYB
     Dosage: 700 MG, 0, 2, 6 WEEKS, THEN EVERY 8 WEEKS (RE-INDUCTION)
     Route: 042
     Dates: start: 20230728
  8. INFLECTRA [Suspect]
     Active Substance: INFLIXIMAB-DYYB
     Dosage: 700 MG, 0, 2, 6 WEEKS, THEN EVERY 8 WEEKS (RECEIVED 16 WEEKS AND 1 DAY AFTER LAST TREATMENT)
     Route: 042
     Dates: start: 20231118
  9. INFLECTRA [Suspect]
     Active Substance: INFLIXIMAB-DYYB
     Dosage: 700 MG, 0, 2, 6 WEEKS, THEN EVERY 8 WEEKS (RECEIVED 5 WEEKS AND 6 DAYS AFTER LAST TREATMENT)
     Route: 042
     Dates: start: 20231229
  10. INFLECTRA [Suspect]
     Active Substance: INFLIXIMAB-DYYB
     Dosage: 700 MG, 0, 2, 6 WEEKS, THEN EVERY 8 WEEKS (AFTER 6 WEEKS)
     Route: 042
     Dates: start: 20240209
  11. INFLECTRA [Suspect]
     Active Substance: INFLIXIMAB-DYYB
     Dosage: 700 MG, 0, 2, 6 WEEKS, THEN EVERY 8 WEEKS (RE-INDUCTION)(700 MG, 7 WEEKS )
     Route: 042
     Dates: start: 20240327
  12. INFLECTRA [Suspect]
     Active Substance: INFLIXIMAB-DYYB
     Dosage: 700 MG, 0, 2, 6 WEEKS, THEN EVERY 8 WEEKS
     Route: 042
  13. IMURAN [Concomitant]
     Active Substance: AZATHIOPRINE
     Dosage: 50 MG
     Route: 048
     Dates: start: 201801

REACTIONS (8)
  - Condition aggravated [Recovered/Resolved]
  - Pain [Recovering/Resolving]
  - Malaise [Not Recovered/Not Resolved]
  - Condition aggravated [Recovering/Resolving]
  - Inappropriate schedule of product administration [Unknown]
  - Off label use [Unknown]
  - Off label use [Unknown]
  - Intentional product use issue [Unknown]

NARRATIVE: CASE EVENT DATE: 20231118
